FAERS Safety Report 20450630 (Version 4)
Quarter: 2022Q2

REPORT INFORMATION
  Report Type: Spontaneous
  Country: JP (occurrence: JP)
  Receive Date: 20220209
  Receipt Date: 20220402
  Transmission Date: 20220721
  Serious: Yes (Death, Hospitalization)
  Sender: FDA-Public Use
  Company Number: JP-JNJFOC-20211250040

PATIENT
  Age: 68 Year
  Sex: Male

DRUGS (3)
  1. ZYTIGA [Suspect]
     Active Substance: ABIRATERONE ACETATE
     Indication: Hormone-refractory prostate cancer
     Route: 048
     Dates: start: 20211208, end: 20211217
  2. PREDONINE [Concomitant]
     Active Substance: PREDNISOLONE
     Indication: Hormone-refractory prostate cancer
     Route: 065
     Dates: start: 20211208, end: 20211217
  3. PREDONINE [Concomitant]
     Active Substance: PREDNISOLONE

REACTIONS (2)
  - Hepatic function abnormal [Fatal]
  - Prostate cancer [Fatal]

NARRATIVE: CASE EVENT DATE: 20211217
